FAERS Safety Report 19096409 (Version 1)
Quarter: 2021Q2

REPORT INFORMATION
  Report Type: Spontaneous
  Country: US (occurrence: US)
  Receive Date: 20210405
  Receipt Date: 20210405
  Transmission Date: 20210717
  Serious: Yes (Hospitalization)
  Sender: FDA-Public Use
  Company Number: None

PATIENT
  Age: 81 Year
  Sex: Male

DRUGS (10)
  1. XELJANZ [Concomitant]
     Active Substance: TOFACITINIB CITRATE
  2. XARELTO [Concomitant]
     Active Substance: RIVAROXABAN
  3. LISINOPRIL. [Concomitant]
     Active Substance: LISINOPRIL
  4. BOTOX [Suspect]
     Active Substance: ONABOTULINUMTOXINA
     Indication: HEMIPLEGIA
     Dosage: ?          OTHER FREQUENCY:AS NEEDED;?
     Route: 030
     Dates: start: 20210302
  5. FOLIC ACID. [Concomitant]
     Active Substance: FOLIC ACID
  6. ATORVASTATIN [Concomitant]
     Active Substance: ATORVASTATIN
  7. RAYOS [Concomitant]
     Active Substance: PREDNISONE
  8. DONEPEZIL. [Concomitant]
     Active Substance: DONEPEZIL
  9. CARVEDILOL. [Concomitant]
     Active Substance: CARVEDILOL
  10. AMIODARONE [Concomitant]
     Active Substance: AMIODARONE

REACTIONS (1)
  - Autoresuscitation [None]

NARRATIVE: CASE EVENT DATE: 20210321
